FAERS Safety Report 14947566 (Version 4)
Quarter: 2018Q2

REPORT INFORMATION
  Report Type: Report from Study
  Country: SE (occurrence: SE)
  Receive Date: 20180529
  Receipt Date: 20180606
  Transmission Date: 20180711
  Serious: Yes (Death, Hospitalization)
  Sender: FDA-Public Use
  Company Number: SE-JNJFOC-20180527062

PATIENT
  Age: 73 Year
  Sex: Female

DRUGS (1)
  1. IBRUTINIB [Suspect]
     Active Substance: IBRUTINIB
     Indication: CHRONIC LYMPHOCYTIC LEUKAEMIA
     Route: 048
     Dates: start: 20180508

REACTIONS (2)
  - Tick-borne viral encephalitis [Fatal]
  - Monocytosis [Not Recovered/Not Resolved]

NARRATIVE: CASE EVENT DATE: 20180517
